FAERS Safety Report 17135076 (Version 1)
Quarter: 2019Q4

REPORT INFORMATION
  Report Type: Spontaneous
  Country: JP (occurrence: JP)
  Receive Date: 20191210
  Receipt Date: 20191210
  Transmission Date: 20200122
  Serious: Yes (Other)
  Sender: FDA-Public Use
  Company Number: JP-009507513-1912JPN000586J

PATIENT
  Sex: Male

DRUGS (14)
  1. OLMETEC [Concomitant]
     Active Substance: OLMESARTAN MEDOXOMIL
     Dosage: 30,AFTER BREAKFAST
     Route: 048
  2. MEDICON [Concomitant]
     Active Substance: DEXTROMETHORPHAN HYDROBROMIDE
     Dosage: 2 DOSAGE FORM, TID
     Route: 048
  3. ZETIA [Suspect]
     Active Substance: EZETIMIBE
     Indication: HYPERLIPIDAEMIA
     Dosage: 1 DOSAGE FORM,AFTER BREAKFAST
     Route: 048
  4. NORVASC [Concomitant]
     Active Substance: AMLODIPINE BESYLATE
     Dosage: UNK
     Route: 065
  5. SIGMART [Concomitant]
     Active Substance: NICORANDIL
     Dosage: 1 DOSAGE FORM, BID
     Route: 048
  6. METHYCOBAL [Concomitant]
     Active Substance: METHYLCOBALAMIN
     Dosage: 1 DOSAGE FORM, TID
     Route: 048
  7. RENIVACE [Concomitant]
     Active Substance: ENALAPRIL
     Dosage: 1 DOSAGE FORM,AFTER BREAKFAST
     Route: 048
  8. MAINTATE [Concomitant]
     Active Substance: BISOPROLOL FUMARATE
     Dosage: 1 DOSAGE FORM,AFTER DINNER
     Route: 048
  9. BIO-THREE [Concomitant]
     Active Substance: HERBALS
     Dosage: 2 DOSAGE FORM, TID
     Route: 048
  10. CARDENALIN [Concomitant]
     Active Substance: DOXAZOSIN MESYLATE
     Dosage: UNK
     Route: 065
  11. ALINAMIN F [Concomitant]
     Active Substance: FURSULTIAMINE HYDROCHLORIDE
     Dosage: 1 DOSAGE FORM, TID
     Route: 048
  12. MUCODYNE [Concomitant]
     Active Substance: CARBOCYSTEINE
     Dosage: 1 DOSAGE FORM, TID
     Route: 048
  13. FLOMOX [Concomitant]
     Dosage: 1 DOSAGE FORM, TID
     Route: 048
  14. ADALAT CC [Concomitant]
     Active Substance: NIFEDIPINE
     Dosage: 20MILLIGRAM,AFTER BREAKFAST
     Route: 048

REACTIONS (8)
  - Pigmentation disorder [Unknown]
  - Hepatic steatosis [Unknown]
  - Oedema peripheral [Unknown]
  - Petechiae [Unknown]
  - Asthma [Unknown]
  - Cataract [Unknown]
  - Labile blood pressure [Unknown]
  - Blood pressure increased [Unknown]
